FAERS Safety Report 9095814 (Version 2)
Quarter: 2013Q1

REPORT INFORMATION
  Report Type: Spontaneous
  Country: US (occurrence: US)
  Receive Date: 20130220
  Receipt Date: 20130308
  Transmission Date: 20140127
  Serious: Yes (Hospitalization, Other)
  Sender: FDA-Public Use
  Company Number: US-PFIZER INC-2013020154

PATIENT
  Age: 82 Year
  Sex: Female

DRUGS (16)
  1. XALKORI [Suspect]
     Indication: LUNG NEOPLASM MALIGNANT
     Dosage: 250 MG, 2X/DAY
     Route: 048
     Dates: start: 20121127, end: 20130124
  2. TYLENOL/COD [Concomitant]
     Dosage: 325 MG, UNK
  3. ATIVAN [Concomitant]
     Dosage: 1 MG, UNK
  4. PRILOSEC [Concomitant]
     Dosage: 20 MG, UNK
  5. PAXIL [Concomitant]
     Dosage: 20 MG, UNK
  6. SIMVASTATIN [Concomitant]
     Dosage: 20 MG, UNK
  7. SYNTHROID [Concomitant]
     Dosage: 25 UG, UNK
  8. CALCIUM [Concomitant]
     Dosage: 600 UNK, UNK
  9. MIRALAX [Concomitant]
     Dosage: UNK (3350 NF)
  10. STOOL SOFTENER [Concomitant]
     Dosage: 240 MG, UNK
  11. ASPIRIN ADLT [Concomitant]
     Dosage: 81 MG, UNK
  12. PROBIOTIC [Concomitant]
     Dosage: UNK
  13. MORPHINE [Concomitant]
     Dosage: 15 MG, UNK
  14. NITROSTAT [Concomitant]
     Dosage: 0.4 MG, UNK
  15. OXYCODONE [Concomitant]
     Dosage: 5 MG, UNK
  16. SENOKOT-S [Concomitant]
     Dosage: 8.6-50 MG PER TAB

REACTIONS (8)
  - Influenza [Unknown]
  - Fatigue [Unknown]
  - Cough [Unknown]
  - Weight increased [Unknown]
  - Oedema peripheral [Recovering/Resolving]
  - Abdominal distension [Unknown]
  - Pleural effusion [Unknown]
  - Malaise [Unknown]
